FAERS Safety Report 10187405 (Version 1)
Quarter: 2014Q2

REPORT INFORMATION
  Report Type: Spontaneous
  Country: US (occurrence: None)
  Receive Date: 20140521
  Receipt Date: 20140521
  Transmission Date: 20141212
  Serious: No
  Sender: FDA-Public Use
  Company Number: None

PATIENT
  Age: 63 Year
  Sex: Female
  Weight: 79.38 kg

DRUGS (7)
  1. DULOXETINE [Suspect]
     Dosage: 1 PILL, QD, ORAL
     Route: 048
  2. DULOXETINE 60 MG [Concomitant]
  3. SYNTHROID 50 MG [Concomitant]
  4. AMBIEN [Concomitant]
  5. HYZAAR 100-12.5 MG [Concomitant]
  6. PEDIATRIC MULTIVITAMIN [Concomitant]
  7. TOPROL XL 200 MG? [Concomitant]

REACTIONS (2)
  - Rash pruritic [None]
  - Product substitution issue [None]
